FAERS Safety Report 17932859 (Version 1)
Quarter: 2020Q2

REPORT INFORMATION
  Report Type: Other
  Country: US (occurrence: US)
  Receive Date: 20200624
  Receipt Date: 20200624
  Transmission Date: 20200714
  Serious: Yes (Other)
  Sender: FDA-Public Use
  Company Number: US-INTERCEPT-PM2020001041

PATIENT
  Age: 58 Year
  Sex: Female

DRUGS (2)
  1. OCALIVA [Suspect]
     Active Substance: OBETICHOLIC ACID
     Indication: PRIMARY BILIARY CHOLANGITIS
     Dosage: 10 MG, QD
     Route: 048
     Dates: start: 20200416, end: 20200614
  2. OCALIVA [Suspect]
     Active Substance: OBETICHOLIC ACID
     Dosage: 5 MG, QD
     Route: 048
     Dates: start: 202006

REACTIONS (10)
  - Arrhythmia [Recovered/Resolved]
  - Flatulence [Recovered/Resolved]
  - Extrasystoles [Recovered/Resolved]
  - Heart rate decreased [Recovered/Resolved]
  - Product prescribing error [Recovered/Resolved]
  - Cardiac disorder [Unknown]
  - Therapy interrupted [Not Recovered/Not Resolved]
  - Chest discomfort [Recovered/Resolved]
  - Fatigue [Unknown]
  - Constipation [Recovered/Resolved]

NARRATIVE: CASE EVENT DATE: 2020
